FAERS Safety Report 9151006 (Version 1)
Quarter: 2013Q1

REPORT INFORMATION
  Report Type: Spontaneous
  Country: US (occurrence: US)
  Receive Date: 20130308
  Receipt Date: 20130308
  Transmission Date: 20140127
  Serious: No
  Sender: FDA-Public Use
  Company Number: US-GLAXOSMITHKLINE-A0967824A

PATIENT
  Age: 60 Year
  Sex: Male

DRUGS (3)
  1. NICORETTE [Suspect]
     Indication: EX-TOBACCO USER
     Route: 002
  2. NICORETTE [Suspect]
     Indication: EX-TOBACCO USER
     Route: 002
  3. CHEMOTHERAPY [Concomitant]

REACTIONS (2)
  - Abdominal discomfort [Not Recovered/Not Resolved]
  - Drug administration error [Not Recovered/Not Resolved]
